FAERS Safety Report 5468871-8 (Version None)
Quarter: 2007Q3

REPORT INFORMATION
  Report Type: 
  Country: None (occurrence: None)
  Receive Date: 20070926
  Receipt Date: 20070914
  Transmission Date: 20080115
  Serious: Yes (Other)
  Sender: FDA-Public Use
  Company Number: US-PFIZER INC-2007078529

PATIENT
  Sex: Male
  Weight: 98.636 kg

DRUGS (3)
  1. CHANTIX [Suspect]
     Indication: SMOKING CESSATION THERAPY
     Route: 048
  2. ACYCLOVIR [Concomitant]
     Route: 048
  3. SOMA [Concomitant]
     Route: 048

REACTIONS (9)
  - ABDOMINAL DISTENSION [None]
  - BACK DISORDER [None]
  - BACK PAIN [None]
  - CHEST DISCOMFORT [None]
  - DYSPEPSIA [None]
  - FLATULENCE [None]
  - HICCUPS [None]
  - MUSCULOSKELETAL STIFFNESS [None]
  - SLEEP DISORDER [None]
